FAERS Safety Report 7464839-0 (Version None)
Quarter: 2011Q2

REPORT INFORMATION
  Report Type: 
  Country: None (occurrence: None)
  Receive Date: 20110509
  Receipt Date: 20081006
  Transmission Date: 20111010
  Serious: Yes (Death, Other)
  Sender: FDA-Public Use
  Company Number: US-BAYER-200835125NA

PATIENT
  Sex: Male
  Weight: 61.224 kg

DRUGS (9)
  1. TRASYLOL [Suspect]
     Indication: CORONARY ARTERY BYPASS
  2. TRASYLOL [Suspect]
     Indication: MITRAL VALVE REPLACEMENT
  3. HEPARIN [Concomitant]
     Dosage: 10,000 UNITS
     Route: 042
  4. RED BLOOD CELLS [Concomitant]
     Dosage: 1 UNIT
     Route: 042
     Dates: start: 20060914
  5. MANNITOL [Concomitant]
     Dosage: 37.5GMS
     Route: 042
  6. VANCOMYCIN [Concomitant]
     Dosage: 300 MG
     Route: 042
  7. RED BLOOD CELLS [Concomitant]
     Dosage: 500ML TOTAL
     Route: 042
     Dates: start: 20060908
  8. TRASYLOL [Suspect]
     Indication: AORTIC SURGERY
  9. TRASYLOL [Suspect]
     Indication: AORTIC VALVE REPLACEMENT
     Dosage: PUMP PRIME DOSE 200 ML/ 50 ML HOUR INFUSION
     Route: 042

REACTIONS (3)
  - RENAL FAILURE [None]
  - INJURY [None]
  - DEATH [None]
